FAERS Safety Report 13322496 (Version 3)
Quarter: 2018Q3

REPORT INFORMATION
  Report Type: Spontaneous
  Country: US (occurrence: US)
  Receive Date: 20170309
  Receipt Date: 20180921
  Transmission Date: 20181010
  Serious: Yes (Other)
  Sender: FDA-Public Use
  Company Number: US-PFIZER INC-2017102069

PATIENT
  Age: 51 Year
  Sex: Female

DRUGS (43)
  1. AZITHROMYCIN ANHYDROUS. [Concomitant]
     Active Substance: AZITHROMYCIN ANHYDROUS
     Dosage: 2 BY MOUTH, DAY 1 EVERY DAY 2?5
     Route: 048
     Dates: start: 20161005, end: 20170419
  2. PREDNISONE. [Concomitant]
     Active Substance: PREDNISONE
     Dosage: 5X2D, 4X2D, 3X2D, 2X2D, 1X2D
     Route: 048
     Dates: start: 20180607, end: 20180617
  3. TRAMADOL HCL [Concomitant]
     Active Substance: TRAMADOL HYDROCHLORIDE
     Indication: MUSCLE STRAIN
  4. DEXILANT [Concomitant]
     Active Substance: DEXLANSOPRAZOLE
     Indication: ABDOMINAL PAIN UPPER
     Dosage: 1 DF, DAILY
     Route: 048
     Dates: start: 20140301, end: 20140311
  5. DIPROLENE [Concomitant]
     Active Substance: BETAMETHASONE DIPROPIONATE
     Indication: DERMATITIS ATOPIC
     Dosage: 2X/DAY
     Dates: start: 20130821, end: 20131015
  6. EFFEXOR XR [Suspect]
     Active Substance: VENLAFAXINE HYDROCHLORIDE
     Dosage: 300 MG, UNK
  7. EFFEXOR XR [Suspect]
     Active Substance: VENLAFAXINE HYDROCHLORIDE
     Dosage: 1 DF, DAILY (AS DIRECTED)
     Dates: start: 20170316, end: 20170505
  8. VENLAFAXINE HCL [Concomitant]
     Active Substance: VENLAFAXINE HYDROCHLORIDE
     Indication: DEPRESSION
     Dosage: ONCE DAILY X 2 WEEKS
     Route: 048
     Dates: start: 20111128, end: 20111216
  9. VENLAFAXINE HCL [Concomitant]
     Active Substance: VENLAFAXINE HYDROCHLORIDE
     Indication: ANXIETY
     Dosage: ONCE DAILY
     Route: 048
     Dates: start: 20111128, end: 20120120
  10. TAMIFLU [Concomitant]
     Active Substance: OSELTAMIVIR PHOSPHATE
     Indication: UPPER RESPIRATORY TRACT INFECTION
     Dosage: 1 DF, 2X/DAY FOR 5 DAYS
     Route: 048
     Dates: start: 20121214, end: 20121224
  11. EFFEXOR XR [Suspect]
     Active Substance: VENLAFAXINE HYDROCHLORIDE
     Dosage: 150 MG, UNK
  12. EFFEXOR XR [Suspect]
     Active Substance: VENLAFAXINE HYDROCHLORIDE
     Dosage: 150 MG, ALTERNATE DAY (ON EVEN DAYS FOR 3 WEEKS)
  13. ADVIL [Concomitant]
     Active Substance: IBUPROFEN
     Indication: PAIN
     Dosage: UNK, AS NEEDED
     Dates: start: 20140214
  14. CYCLOBENZAPRINE HCL [Concomitant]
     Active Substance: CYCLOBENZAPRINE HYDROCHLORIDE
     Indication: MYALGIA
     Dosage: 1?2 EVERY NIGHT AT BEDTIME
     Route: 048
     Dates: start: 20170706, end: 20180111
  15. VITAMIN D [Concomitant]
     Active Substance: CHOLECALCIFEROL
     Dosage: 1 DF, WEEKLY FOR 12 WEEKS
     Route: 048
     Dates: start: 20170706, end: 20171004
  16. BUPROPION HCL ER [Concomitant]
     Active Substance: BUPROPION HYDROCHLORIDE
     Dosage: 0.5 DF, DAILY (IN THE MORNING)
     Route: 048
     Dates: start: 20170705, end: 20180822
  17. EFFEXOR XR [Suspect]
     Active Substance: VENLAFAXINE HYDROCHLORIDE
     Indication: DEPRESSION
     Dosage: UNK
     Dates: start: 2013
  18. EFFEXOR XR [Suspect]
     Active Substance: VENLAFAXINE HYDROCHLORIDE
     Dosage: 1 DF, DAILY (AS DIRECTED)
     Dates: end: 20170526
  19. PREDNISONE. [Concomitant]
     Active Substance: PREDNISONE
     Indication: PHARYNGITIS
     Dosage: 4X3D, 3X3D, 2X3D, 1X3D
     Route: 048
     Dates: start: 20130827, end: 20131015
  20. MACROBID [Concomitant]
     Active Substance: NITROFURANTOIN\NITROFURANTOIN MONOHYDRATE
     Indication: DYSURIA
     Dosage: 1 DF, 2X/DAY FOR 10 DAYS
     Route: 048
     Dates: start: 20130821, end: 20130831
  21. MACROBID [Concomitant]
     Active Substance: NITROFURANTOIN\NITROFURANTOIN MONOHYDRATE
     Indication: POLLAKIURIA
     Dosage: 2X/DAY FOR 7 DAYS
     Route: 048
     Dates: start: 20140204, end: 20140211
  22. EFFEXOR XR [Suspect]
     Active Substance: VENLAFAXINE HYDROCHLORIDE
     Dosage: 75 MG, UNK
  23. EFFEXOR XR [Suspect]
     Active Substance: VENLAFAXINE HYDROCHLORIDE
     Dosage: 75 MG, ALTERNATE DAY (ON THE OTHER DAYS FOR 3 WEEKS)
  24. EFFEXOR XR [Suspect]
     Active Substance: VENLAFAXINE HYDROCHLORIDE
     Dosage: UNK, DAILY
     Dates: start: 20130531, end: 20170412
  25. EFFEXOR XR [Suspect]
     Active Substance: VENLAFAXINE HYDROCHLORIDE
     Dosage: 1 DF, DAILY (AS DIRECTED)
     Route: 048
     Dates: start: 20170316, end: 20170503
  26. VENLAFAXINE HCL [Concomitant]
     Active Substance: VENLAFAXINE HYDROCHLORIDE
     Dosage: UNK UNK, 1X/DAY
     Route: 048
     Dates: start: 20120120, end: 20130531
  27. PREDNISONE. [Concomitant]
     Active Substance: PREDNISONE
     Indication: DERMATITIS CONTACT
     Dosage: 2 DF, DAILY
     Route: 048
     Dates: start: 20130829, end: 20131015
  28. DEPO?MEDROL [Concomitant]
     Active Substance: METHYLPREDNISOLONE ACETATE
     Dosage: UNK
     Dates: start: 20130827
  29. TRIAMCINOLONE ACETONIDE. [Concomitant]
     Active Substance: TRIAMCINOLONE ACETONIDE
     Indication: DERMATITIS
     Dosage: 2X/DAY AS NEEDED
     Dates: start: 20160510
  30. VENLAFAXINE HCL [Concomitant]
     Active Substance: VENLAFAXINE HYDROCHLORIDE
     Dosage: UNK UNK, DAILY
     Route: 048
     Dates: start: 20170706, end: 20180612
  31. TRINTELLIX [Concomitant]
     Active Substance: VORTIOXETINE HYDROBROMIDE
     Indication: DEPRESSION
     Dosage: 1 DF, DAILY
     Route: 048
     Dates: start: 20170316, end: 20170419
  32. PREDNISONE. [Concomitant]
     Active Substance: PREDNISONE
     Dosage: 4X3D, 3X3D, 2X3D,1X3D
     Route: 048
     Dates: start: 20131015, end: 20131015
  33. PREDNISONE. [Concomitant]
     Active Substance: PREDNISONE
     Dosage: 3 DF, DAILY FOR 5 DAYS
     Route: 048
     Dates: start: 20160216, end: 20160221
  34. EFFEXOR XR [Suspect]
     Active Substance: VENLAFAXINE HYDROCHLORIDE
     Dosage: 75 MG, UNK FOR 3 WEEKS
  35. EFFEXOR XR [Suspect]
     Active Substance: VENLAFAXINE HYDROCHLORIDE
     Dosage: 2 DF, DAILY
     Route: 048
     Dates: start: 20170526, end: 20170706
  36. BUPROPION HCL ER [Concomitant]
     Active Substance: BUPROPION HYDROCHLORIDE
     Indication: DEPRESSION
     Dosage: 1 DF, DAILY (IN THE MORNING)
     Route: 048
     Dates: start: 20170613, end: 20170627
  37. TRAMADOL HCL [Concomitant]
     Active Substance: TRAMADOL HYDROCHLORIDE
     Indication: PAIN
     Dosage: 1 DF, 4X/DAY
     Dates: start: 20151026, end: 20160216
  38. TRAMADOL HCL [Concomitant]
     Active Substance: TRAMADOL HYDROCHLORIDE
     Indication: BONE DISORDER
  39. TAMIFLU [Concomitant]
     Active Substance: OSELTAMIVIR PHOSPHATE
     Dosage: 1 DF, 2X/DAY FOR 5 DAYS
     Route: 048
     Dates: start: 20140214, end: 20140301
  40. EFFEXOR XR [Suspect]
     Active Substance: VENLAFAXINE HYDROCHLORIDE
     Dosage: 150 MG, UNK
  41. BUPROPION HCL ER [Concomitant]
     Active Substance: BUPROPION HYDROCHLORIDE
     Dosage: 1 DF, DAILY (IN THE MORNING)
     Route: 048
     Dates: start: 20170627, end: 20170705
  42. TRINTELLIX [Concomitant]
     Active Substance: VORTIOXETINE HYDROBROMIDE
     Dosage: 1 DF, DAILY
     Route: 048
     Dates: start: 20170505, end: 20170526
  43. AZITHROMYCIN ANHYDROUS. [Concomitant]
     Active Substance: AZITHROMYCIN ANHYDROUS
     Dosage: 2 DAY 1 THEN 1 DAILY, 2?5 DAYS
     Route: 048
     Dates: start: 20120810, end: 20120815

REACTIONS (5)
  - Alcohol abuse [Recovering/Resolving]
  - Loss of consciousness [Unknown]
  - Gambling disorder [Recovered/Resolved]
  - Self esteem decreased [Unknown]
  - Withdrawal syndrome [Unknown]
